APPROVED DRUG PRODUCT: MUCINEX D
Active Ingredient: GUAIFENESIN; PSEUDOEPHEDRINE HYDROCHLORIDE
Strength: 600MG;60MG
Dosage Form/Route: TABLET, EXTENDED RELEASE;ORAL
Application: N021585 | Product #001
Applicant: RB HEALTH US LLC
Approved: Jun 22, 2004 | RLD: Yes | RS: No | Type: OTC